FAERS Safety Report 7357427-8 (Version None)
Quarter: 2011Q1

REPORT INFORMATION
  Report Type: 
  Country: None (occurrence: None)
  Receive Date: 20110308
  Receipt Date: 20110218
  Transmission Date: 20110831
  Serious: Yes (Other)
  Sender: FDA-Public Use
  Company Number: AUR-APL-2011-00608

PATIENT
  Age: 71 Year
  Sex: Female

DRUGS (4)
  1. PROAIR HFA [Concomitant]
  2. LOVASTATIN [Concomitant]
  3. ADVAIR DISKUS 100/50 [Concomitant]
  4. ALENDRONATE SODIUM [Suspect]
     Dosage: 70MG-WEEKLY-ORAL
     Route: 048
     Dates: end: 20110201

REACTIONS (1)
  - TOOTH INFECTION [None]
